FAERS Safety Report 6249340-4 (Version None)
Quarter: 2009Q2

REPORT INFORMATION
  Report Type: 
  Country: None (occurrence: None)
  Receive Date: 20090629
  Receipt Date: 20090618
  Transmission Date: 20091009
  Serious: Yes (Other)
  Sender: FDA-Public Use
  Company Number: IE-MERCK-0802GBR00032

PATIENT
  Age: 30 Year
  Sex: Female

DRUGS (3)
  1. JANUVIA [Suspect]
     Indication: DIABETES MELLITUS
     Route: 048
     Dates: start: 20071201, end: 20080219
  2. METFORMIN [Concomitant]
     Route: 065
     Dates: start: 20071201
  3. GLYBURIDE [Concomitant]
     Route: 065
     Dates: start: 20080219

REACTIONS (3)
  - DRUG EXPOSURE DURING PREGNANCY [None]
  - MECONIUM STAIN [None]
  - TACHYCARDIA FOETAL [None]
